FAERS Safety Report 4853082-7 (Version None)
Quarter: 2005Q4

REPORT INFORMATION
  Report Type: 
  Country: None (occurrence: None)
  Receive Date: 20051212
  Receipt Date: 20051122
  Transmission Date: 20060501
  Serious: Yes (Death, Other)
  Sender: FDA-Public Use
  Company Number: USA0510110235

PATIENT
  Age: 74 Year
  Sex: Male
  Weight: 59 kg

DRUGS (21)
  1. XIGRIS [Suspect]
     Indication: SEPSIS
     Dosage: 20 MG,
     Dates: start: 20051006, end: 20051008
  2. NOREPINEPHRINE BITARTRATE [Concomitant]
  3. PHENYLEPHRINE (PHENYLEPHRINE) [Concomitant]
  4. DOBUTAMINE (DOBUTAMINE) [Concomitant]
  5. CIPROFLOXACIN [Concomitant]
  6. ZOSYN [Concomitant]
  7. TOBRAMYCIN (TOBRAMYCIN SULFATE SULFATE) [Concomitant]
  8. ZITHROMAX [Concomitant]
  9. MIDAZOLAM HCL [Concomitant]
  10. HEPARIN SODIUM [Concomitant]
  11. AMIODARONE HCL [Concomitant]
  12. ALBUTEROL [Concomitant]
  13. ASA (ASPIRIN (ACETYLSALICYLIC ACID) [Concomitant]
  14. ATORVASTATIN CALCIUM [Concomitant]
  15. CAPTOPRIL [Concomitant]
  16. METOPROLOL SUCCINATE [Concomitant]
  17. RANITIDINE [Concomitant]
  18. IMIPENEM (IMIPENEM) [Concomitant]
  19. VANCOCIN CP ^ILAC REHBERI^ (VANCOMYCIN HYDROCHLORIDE) [Concomitant]
  20. EPOETIN ALFA (EPOETIN ALFA) [Concomitant]
  21. CLOPIDOGREL (CLOPIDOGREL) [Concomitant]

REACTIONS (16)
  - ACCIDENTAL OVERDOSE [None]
  - BLOOD POTASSIUM DECREASED [None]
  - BRADYCARDIA [None]
  - CARDIAC ARREST [None]
  - DEVICE FAILURE [None]
  - DIALYSIS [None]
  - DISSEMINATED INTRAVASCULAR COAGULATION [None]
  - HAEMATOCRIT DECREASED [None]
  - HAEMOGLOBIN DECREASED [None]
  - HYPOTENSION [None]
  - INCORRECT DRUG ADMINISTRATION RATE [None]
  - LOSS OF CONSCIOUSNESS [None]
  - MEDICATION ERROR [None]
  - OVERDOSE [None]
  - RESPIRATORY RATE INCREASED [None]
  - THERAPY NON-RESPONDER [None]
